FAERS Safety Report 7958701-4 (Version None)
Quarter: 2011Q4

REPORT INFORMATION
  Report Type: 
  Country: None (occurrence: None)
  Receive Date: 20111206
  Receipt Date: 20111201
  Transmission Date: 20120403
  Serious: No
  Sender: FDA-Public Use
  Company Number: US-TEVA-311364USA

PATIENT
  Sex: Female
  Weight: 67.192 kg

DRUGS (2)
  1. PLAN B ONE-STEP [Suspect]
     Indication: POST COITAL CONTRACEPTION
     Dosage: 1.5 MILLIGRAM;
     Route: 048
     Dates: start: 20111017, end: 20111017
  2. PLAN B ONE-STEP [Suspect]
     Dosage: 1.5 MILLIGRAM;
     Route: 048
     Dates: start: 20111113, end: 20111113

REACTIONS (4)
  - PELVIC PAIN [None]
  - MENSTRUATION IRREGULAR [None]
  - BACK PAIN [None]
  - BREAST TENDERNESS [None]
